FAERS Safety Report 8261318-8 (Version None)
Quarter: 2012Q2

REPORT INFORMATION
  Report Type: 
  Country: None (occurrence: None)
  Receive Date: 20120405
  Receipt Date: 20120330
  Transmission Date: 20120825
  Serious: Yes (Hospitalization, Other)
  Sender: FDA-Public Use
  Company Number: IE-ABBOTT-12P-229-0920721-00

PATIENT
  Age: 42 Year
  Sex: Female

DRUGS (6)
  1. HUMIRA [Suspect]
     Indication: IMMUNOSUPPRESSION
  2. FOLIC ACID [Concomitant]
     Indication: PRODUCT USED FOR UNKNOWN INDICATION
     Route: 048
  3. HUMIRA [Suspect]
     Indication: PSORIATIC ARTHROPATHY
     Route: 058
     Dates: end: 20091001
  4. RAMIC [Concomitant]
     Indication: PRODUCT USED FOR UNKNOWN INDICATION
     Route: 048
  5. LASIX [Concomitant]
     Indication: PRODUCT USED FOR UNKNOWN INDICATION
     Route: 048
  6. METHOTREXATE [Suspect]
     Indication: IMMUNOSUPPRESSION
     Route: 048
     Dates: end: 20091001

REACTIONS (9)
  - THORACIC HAEMORRHAGE [None]
  - AORTIC VALVE INCOMPETENCE [None]
  - HEPATIC FAILURE [None]
  - RENAL FAILURE [None]
  - MULTI-ORGAN FAILURE [None]
  - HYPERKALAEMIA [None]
  - CARDIAC ARREST [None]
  - SEPTIC SHOCK [None]
  - THROMBOSIS [None]
